FAERS Safety Report 4421656-3 (Version None)
Quarter: 2004Q3

REPORT INFORMATION
  Report Type: 
  Country: None (occurrence: None)
  Receive Date: 20040804
  Receipt Date: 20040721
  Transmission Date: 20050211
  Serious: Yes (Hospitalization)
  Sender: FDA-Public Use
  Company Number: CERZ-10621

PATIENT
  Age: 20 Year
  Sex: Male
  Weight: 67.5 kg

DRUGS (2)
  1. CEREZYME [Suspect]
     Indication: GAUCHER'S DISEASE
     Dosage: 4800 UNITS Q2WKS IV
     Route: 042
     Dates: start: 19970601
  2. FOSAMAX [Concomitant]

REACTIONS (8)
  - CERVICAL VERTEBRAL FRACTURE [None]
  - EXTRADURAL HAEMATOMA [None]
  - FACIAL BONES FRACTURE [None]
  - ROAD TRAFFIC ACCIDENT [None]
  - SKULL FRACTURE [None]
  - SKULL FRACTURED BASE [None]
  - SPINAL COMPRESSION FRACTURE [None]
  - SUBARACHNOID HAEMORRHAGE [None]
